FAERS Safety Report 17794579 (Version 1)
Quarter: 2020Q2

REPORT INFORMATION
  Report Type: Spontaneous
  Country: CN (occurrence: CN)
  Receive Date: 20200515
  Receipt Date: 20200515
  Transmission Date: 20200714
  Serious: Yes (Other)
  Sender: FDA-Public Use
  Company Number: CN-B.I. PHARMACEUTICALS,INC./RIDGEFIELD-2020-BI-023942

PATIENT
  Age: 46 Year
  Sex: Female
  Weight: 51 kg

DRUGS (6)
  1. ATROVENT [Suspect]
     Active Substance: IPRATROPIUM BROMIDE
     Indication: COUGH
     Dosage: FORM OF ADMIN: INHALATION SOLUTION
     Route: 055
     Dates: start: 20200421, end: 20200424
  2. TAZOCIN [Suspect]
     Active Substance: PIPERACILLIN SODIUM\TAZOBACTAM SODIUM
     Indication: INFECTION
     Dosage: FORM OF ADMIN: INJECTION SOLUTION
     Route: 042
     Dates: start: 20200422, end: 20200425
  3. PULMICORT TURBUHALER [Suspect]
     Active Substance: BUDESONIDE
     Indication: COUGH
     Dosage: FORM OF ADMIN: SUSPENSION SOLUTION
     Route: 055
     Dates: start: 20200421, end: 20200424
  4. SODIUM CHLORIDE. [Concomitant]
     Active Substance: SODIUM CHLORIDE
     Indication: VEHICLE SOLUTION USE
     Dosage: FORM OF ADMIN: INJECTION SOLUTION
     Route: 042
     Dates: start: 20200418, end: 20200418
  5. SODIUM CHLORIDE. [Concomitant]
     Active Substance: SODIUM CHLORIDE
     Dosage: FORM OF ADMIN: INJECTION SOLUTION
     Route: 042
     Dates: start: 20200422, end: 20200425
  6. CEFAZOLIN SODIUM. [Concomitant]
     Active Substance: CEFAZOLIN SODIUM
     Indication: INFECTION
     Dosage: FORM OF ADMIN: INJECTION SOLUTION
     Route: 042
     Dates: start: 20200418, end: 20200418

REACTIONS (3)
  - Peripheral swelling [Not Recovered/Not Resolved]
  - Urticaria [Not Recovered/Not Resolved]
  - Lip swelling [Not Recovered/Not Resolved]

NARRATIVE: CASE EVENT DATE: 20200424
